FAERS Safety Report 15711894 (Version 1)
Quarter: 2018Q4

REPORT INFORMATION
  Report Type: Spontaneous
  Country: US (occurrence: US)
  Receive Date: 20181212
  Receipt Date: 20181212
  Transmission Date: 20190205
  Serious: No
  Sender: FDA-Public Use
  Company Number: US-CELGENEUS-USA-20181200661

PATIENT
  Age: 51 Year
  Sex: Female

DRUGS (2)
  1. OTEZLA [Suspect]
     Active Substance: APREMILAST
     Indication: DERMATITIS
     Dosage: STARTER PACK
     Route: 048
     Dates: start: 201811
  2. OTEZLA [Suspect]
     Active Substance: APREMILAST
     Indication: OFF LABEL USE
     Dosage: 60 MILLIGRAM
     Route: 048
     Dates: start: 2018

REACTIONS (3)
  - Diarrhoea [Recovered/Resolved]
  - Headache [Recovered/Resolved]
  - Incorrect dose administered [Unknown]

NARRATIVE: CASE EVENT DATE: 201812
